FAERS Safety Report 19222713 (Version 4)
Quarter: 2021Q2

REPORT INFORMATION
  Report Type: Report from Study
  Country: FR (occurrence: FR)
  Receive Date: 20210505
  Receipt Date: 20210528
  Transmission Date: 20210717
  Serious: Yes (Other)
  Sender: FDA-Public Use
  Company Number: NVSC2021FR080144

PATIENT
  Age: 5 Month
  Sex: Male
  Weight: 8.25 kg

DRUGS (4)
  1. SYNAGIS [Concomitant]
     Active Substance: PALIVIZUMAB
     Indication: PRODUCT USED FOR UNKNOWN INDICATION
     Dosage: UNK, ONCE/SINGLE (SINGLE INJECTION)
     Route: 065
     Dates: start: 20210329
  2. PREDNISONE. [Concomitant]
     Active Substance: PREDNISONE
     Dosage: 16 MG
     Route: 042
     Dates: start: 20210404
  3. PREDNISONE. [Concomitant]
     Active Substance: PREDNISONE
     Indication: PROPHYLAXIS
     Dosage: 8 MG
     Route: 048
     Dates: start: 20210329
  4. ZOLGENSMA [Suspect]
     Active Substance: ONASEMNOGENE ABEPARVOVEC-XIOI
     Indication: SPINAL MUSCULAR ATROPHY
     Dosage: UNK, ONCE/SINGLE (1,1 X 1014 OF VECTOR GENOMES/KG)
     Route: 042
     Dates: start: 20210330

REACTIONS (3)
  - Anaemia [Unknown]
  - Thrombocytopenia [Recovered/Resolved]
  - Aspartate aminotransferase increased [Unknown]

NARRATIVE: CASE EVENT DATE: 20210404
